FAERS Safety Report 9335418 (Version 2)
Quarter: 2023Q2

REPORT INFORMATION
  Report Type: Spontaneous
  Country: US (occurrence: US)
  Receive Date: 20130605
  Receipt Date: 20230607
  Transmission Date: 20230722
  Serious: Yes (Life-Threatening, Hospitalization)
  Sender: FDA-Public Use
  Company Number: US-PFIZER INC-2013165490

PATIENT
  Age: 20 Year
  Sex: Female

DRUGS (8)
  1. ONDANSETRON HYDROCHLORIDE [Suspect]
     Active Substance: ONDANSETRON HYDROCHLORIDE
     Indication: Nausea
     Dosage: 4 MG
     Route: 042
     Dates: start: 20110910, end: 20110910
  2. ONDANSETRON HYDROCHLORIDE [Suspect]
     Active Substance: ONDANSETRON HYDROCHLORIDE
     Indication: Nausea
     Dosage: 4 MG
     Route: 042
     Dates: start: 20110911, end: 20110911
  3. ONDANSETRON HYDROCHLORIDE [Suspect]
     Active Substance: ONDANSETRON HYDROCHLORIDE
     Indication: Vomiting
     Dosage: 4 MG
     Route: 042
     Dates: start: 20110911, end: 20110911
  4. ONDANSETRON HYDROCHLORIDE [Suspect]
     Active Substance: ONDANSETRON HYDROCHLORIDE
     Dosage: 4 MG
     Route: 042
     Dates: start: 20110911, end: 20110911
  5. ONDANSETRON HYDROCHLORIDE [Suspect]
     Active Substance: ONDANSETRON HYDROCHLORIDE
     Dosage: 4 MG
     Route: 042
     Dates: start: 20110911, end: 20110911
  6. AZITHROMYCIN [Suspect]
     Active Substance: AZITHROMYCIN
     Indication: Pneumonia
     Dosage: 500 MG, UNK
     Route: 042
     Dates: start: 20110912
  7. AZITHROMYCIN [Suspect]
     Active Substance: AZITHROMYCIN
     Dosage: 500 MG, UNK
     Route: 042
     Dates: start: 20110913
  8. AZITHROMYCIN [Suspect]
     Active Substance: AZITHROMYCIN
     Dosage: 500 MG
     Route: 042
     Dates: start: 20110911, end: 20110911

REACTIONS (8)
  - Cardiac arrest [Recovered/Resolved]
  - Electrocardiogram QT prolonged [Recovered/Resolved]
  - Ventricular arrhythmia [Not Recovered/Not Resolved]
  - Ventricular fibrillation [Unknown]
  - Bradycardia [Unknown]
  - Hypotension [Unknown]
  - Mydriasis [Unknown]
  - Posture abnormal [Unknown]

NARRATIVE: CASE EVENT DATE: 20110912
